FAERS Safety Report 8809492 (Version 1)
Quarter: 2012Q4

REPORT INFORMATION
  Report Type: Report from Study
  Country: US (occurrence: US)
  Receive Date: 20120926
  Receipt Date: 20120926
  Transmission Date: 20130627
  Serious: Yes (Life-Threatening, Hospitalization, Disabling)
  Sender: FDA-Public Use
  Company Number: US-ASTRAZENECA-2012SE72542

PATIENT
  Sex: Male

DRUGS (14)
  1. STUDY PROCEDURE [Suspect]
     Indication: CONSTIPATION
     Route: 065
  2. LISINOPRIL [Suspect]
     Indication: HYPERTENSION
     Route: 048
     Dates: start: 20120906, end: 20120910
  3. BISACODYL [Suspect]
     Indication: CONSTIPATION
     Route: 048
     Dates: start: 20110920
  4. CLONIDINE [Concomitant]
     Indication: HYPERTENSION
     Route: 048
  5. METHOCARBAMOL [Concomitant]
     Indication: MUSCLE TIGHTNESS
     Route: 048
  6. VALIUM [Concomitant]
     Indication: PAIN
     Route: 048
  7. PRAVASTAT [Concomitant]
     Indication: HYPERCHOLESTEROLAEMIA
     Dosage: DAILY
     Route: 048
     Dates: start: 2011
  8. ESOMEPRAZOLE [Concomitant]
     Indication: GASTROOESOPHAGEAL REFLUX DISEASE
     Route: 048
     Dates: start: 20111004
  9. TINACTIN [Concomitant]
     Indication: ONYCHOMYCOSIS
     Route: 003
     Dates: start: 20120621
  10. LASIX [Concomitant]
     Indication: HYPERTENSION
     Route: 048
     Dates: start: 20120621
  11. LASIX [Concomitant]
     Indication: OEDEMA PERIPHERAL
     Route: 048
     Dates: start: 20120621
  12. OXYCODONE [Concomitant]
     Indication: BACK PAIN
     Route: 048
     Dates: start: 20111116
  13. MSER [Concomitant]
     Indication: BACK PAIN
     Route: 048
     Dates: start: 20120213
  14. DIAZEPAM [Concomitant]
     Indication: MUSCLE TIGHTNESS
     Route: 048
     Dates: start: 20111004

REACTIONS (6)
  - Sepsis [Recovered/Resolved]
  - Drug hypersensitivity [Recovered/Resolved]
  - Colitis [Recovered/Resolved]
  - Small intestinal obstruction [Recovered/Resolved]
  - Renal failure acute [Recovered/Resolved]
  - Hyperkalaemia [Recovered/Resolved]
